FAERS Safety Report 6456444-X (Version None)
Quarter: 2009Q4

REPORT INFORMATION
  Report Type: 
  Country: None (occurrence: None)
  Receive Date: 20091125
  Receipt Date: 20091119
  Transmission Date: 20100525
  Serious: Yes (Other)
  Sender: FDA-Public Use
  Company Number: PHEH2009US16320

PATIENT
  Sex: Female
  Weight: 56.2 kg

DRUGS (2)
  1. EXELON [Suspect]
     Dosage: 9.5 QD
     Route: 061
  2. KEPPRA [Concomitant]

REACTIONS (1)
  - THERAPEUTIC RESPONSE UNEXPECTED [None]
